FAERS Safety Report 23661094 (Version 1)
Quarter: 2024Q1

REPORT INFORMATION
  Report Type: Spontaneous
  Country: US (occurrence: US)
  Receive Date: 20240322
  Receipt Date: 20240322
  Transmission Date: 20240410
  Serious: Yes (Life-Threatening)
  Sender: FDA-Public Use
  Company Number: US-DRL-USA-LIT/USA/24/0004596

PATIENT

DRUGS (4)
  1. CYCLOPHOSPHAMIDE [Suspect]
     Active Substance: CYCLOPHOSPHAMIDE
     Indication: Prophylaxis
  2. TACROLIMUS [Suspect]
     Active Substance: TACROLIMUS
     Indication: Prophylaxis against graft versus host disease
  3. METHOTREXATE [Suspect]
     Active Substance: METHOTREXATE
     Indication: Prophylaxis
  4. PALIFERMIN [Suspect]
     Active Substance: PALIFERMIN
     Indication: Prophylaxis against graft versus host disease

REACTIONS (1)
  - Acute kidney injury [Unknown]
